FAERS Safety Report 8608276-1 (Version None)
Quarter: 2012Q3

REPORT INFORMATION
  Report Type: 
  Country: None (occurrence: None)
  Receive Date: 20120821
  Receipt Date: 20120816
  Transmission Date: 20120928
  Serious: Yes (Hospitalization)
  Sender: FDA-Public Use
  Company Number: US-JNJFOC-20120106459

PATIENT
  Sex: Female
  Weight: 58.06 kg

DRUGS (1)
  1. SIMPONI [Suspect]
     Indication: RHEUMATOID ARTHRITIS
     Route: 058

REACTIONS (4)
  - DRUG DOSE OMISSION [None]
  - DEVICE MALFUNCTION [None]
  - BRONCHOPNEUMONIA [None]
  - ASTHMA [None]
